FAERS Safety Report 20678021 (Version 1)
Quarter: 2022Q2

REPORT INFORMATION
  Report Type: Spontaneous
  Country: GB (occurrence: GB)
  Receive Date: 20220406
  Receipt Date: 20220406
  Transmission Date: 20220721
  Serious: No
  Sender: FDA-Public Use
  Company Number: None

PATIENT
  Age: 89 Year
  Sex: Male
  Weight: 63 kg

DRUGS (14)
  1. IBUPROFEN [Suspect]
     Active Substance: IBUPROFEN
     Indication: Product used for unknown indication
     Dosage: APPLY UP TO THREE TIMES DAILY TO THE AFFECTED A...
     Route: 065
     Dates: start: 20210818
  2. IBUPROFEN [Suspect]
     Active Substance: IBUPROFEN
     Dosage: 5 PERCENT
     Route: 065
     Dates: start: 20210903
  3. ALLOPURINOL [Concomitant]
     Active Substance: ALLOPURINOL
     Indication: Gout
     Dosage: TAKE ONE DAILY LONG TERM TO PREVENT GOUT. DO NO...
     Route: 065
     Dates: start: 20210504
  4. ANUSOL NOS [Concomitant]
     Active Substance: BALSAM PERU\BENZYL BENZOATE\BISMUTH HYDROXIDE\BISMUTH SUBGALLATE\HYDROCORTISONE ACETATE\ZINC OXIDE
     Indication: Product used for unknown indication
     Dosage: APPLY AS NEEDED
     Route: 065
     Dates: start: 20210818, end: 20210901
  5. BISOPROLOL [Concomitant]
     Active Substance: BISOPROLOL
     Indication: Blood pressure measurement
     Dosage: TAKE ONE EACH DAY FOR THE HEART/BLOOD PRESSURE
     Route: 065
     Dates: start: 20210504
  6. CALCIUM\CHOLECALCIFEROL [Concomitant]
     Active Substance: CALCIUM\CHOLECALCIFEROL
     Dosage: TAKE ONE TABLET TWICE A DAY FOR THE BONES
     Dates: start: 20201005
  7. FUROSEMIDE [Concomitant]
     Active Substance: FUROSEMIDE
     Indication: Product used for unknown indication
     Dosage: TAKE ONE EACH MORNING  AND ONE AT LUNCH TIME, A...
     Route: 065
     Dates: start: 20210324
  8. HYPROMELLOSES [Concomitant]
     Active Substance: HYPROMELLOSES
     Indication: Dry eye
     Dosage: (2 X 10MLS) USE AS OFTEN AS NEEDED FOR DRY EYE(...
     Route: 065
     Dates: start: 20210325
  9. LEVOTHYROXINE [Concomitant]
     Active Substance: LEVOTHYROXINE
     Indication: Product used for unknown indication
     Dosage: TAKE ONE EVERY DAY FOR THE THYROID
     Route: 065
     Dates: start: 20210325
  10. LOSARTAN [Concomitant]
     Active Substance: LOSARTAN
     Indication: Product used for unknown indication
     Dosage: TAKE ONE DAILY FOR YOUR HEART
     Route: 065
     Dates: start: 20210325
  11. OMEPRAZOLE [Concomitant]
     Active Substance: OMEPRAZOLE
     Indication: Gastric pH decreased
     Dosage: TAKE 1 PRN  TO CONTROL EXCESS STOMACH ACID
     Route: 065
     Dates: start: 20210325
  12. ACETAMINOPHEN [Concomitant]
     Active Substance: ACETAMINOPHEN
     Indication: Product used for unknown indication
     Dosage: TAKE 1 OR 2 4 TIMES/DAY
     Route: 065
     Dates: start: 20210818
  13. DIBUCAINE HYDROCHLORIDE\PREDNISOLONE [Concomitant]
     Active Substance: DIBUCAINE HYDROCHLORIDE\PREDNISOLONE
     Indication: Haemorrhoids
     Dosage: FOR THE HAEMORRHOIDS - ONE TO BE INSERTED INTO ...
     Route: 065
     Dates: start: 20210818, end: 20210819
  14. WARFARIN SODIUM [Concomitant]
     Active Substance: WARFARIN SODIUM
     Indication: Product used for unknown indication
     Dosage: MAKE UP THE WARFARIN DOSE AS INSTRUCTED AFTER Y...
     Route: 065
     Dates: start: 20210325

REACTIONS (1)
  - Lip swelling [Recovered/Resolved with Sequelae]

NARRATIVE: CASE EVENT DATE: 20210903
